FAERS Safety Report 6634329-3 (Version None)
Quarter: 2010Q1

REPORT INFORMATION
  Report Type: 
  Country: None (occurrence: None)
  Receive Date: 20100315
  Receipt Date: 20100304
  Transmission Date: 20100710
  Serious: Yes (Hospitalization, Other)
  Sender: FDA-Public Use
  Company Number: US-BAXTER-2010BH005969

PATIENT
  Age: 75 Year
  Sex: Female
  Weight: 125 kg

DRUGS (5)
  1. GAMMAGARD LIQUID [Suspect]
     Indication: IDIOPATHIC THROMBOCYTOPENIC PURPURA
     Route: 042
     Dates: start: 20100227, end: 20100228
  2. GAMMAGARD LIQUID [Suspect]
     Route: 042
     Dates: start: 20100227, end: 20100228
  3. GAMMAGARD LIQUID [Suspect]
     Route: 042
     Dates: start: 20100227, end: 20100228
  4. GAMMAGARD LIQUID [Suspect]
     Route: 042
     Dates: start: 20100227, end: 20100228
  5. ACYCLOVIR [Concomitant]
     Indication: HERPES OESOPHAGITIS

REACTIONS (2)
  - HEPATIC ENZYME INCREASED [None]
  - HEPATITIS ACUTE [None]
